FAERS Safety Report 11302351 (Version 2)
Quarter: 2015Q3

REPORT INFORMATION
  Report Type: Spontaneous
  Country: US (occurrence: US)
  Receive Date: 20150723
  Receipt Date: 20150803
  Transmission Date: 20151125
  Serious: No
  Sender: FDA-Public Use
  Company Number: US-PFIZER INC-2015241748

PATIENT
  Age: 42 Year
  Sex: Male
  Weight: 102 kg

DRUGS (1)
  1. GABAPENTIN. [Suspect]
     Active Substance: GABAPENTIN
     Indication: NEURALGIA
     Dosage: UNK
     Dates: start: 2012

REACTIONS (1)
  - Drug ineffective for unapproved indication [Unknown]

NARRATIVE: CASE EVENT DATE: 2012
